FAERS Safety Report 19871718 (Version 1)
Quarter: 2021Q3

REPORT INFORMATION
  Report Type: Spontaneous
  Country: US (occurrence: US)
  Receive Date: 20210922
  Receipt Date: 20210922
  Transmission Date: 20211014
  Serious: No
  Sender: FDA-Public Use
  Company Number: None

PATIENT
  Age: 72 Year
  Sex: Female

DRUGS (1)
  1. HUMIRA [Suspect]
     Active Substance: ADALIMUMAB
     Indication: RHEUMATOID ARTHRITIS
     Dosage: INJECT 40MG SUBCUTANOEOUSLY EVERY 2 WEEKS IN THE ABDOMEN OR THIGH (ROTATE SITES) AS DIRECT
     Route: 058
     Dates: start: 202008

REACTIONS (1)
  - Ear infection [None]
